FAERS Safety Report 9178253 (Version 1)
Quarter: 2013Q1

REPORT INFORMATION
  Report Type: Spontaneous
  Country: US (occurrence: US)
  Receive Date: 20130321
  Receipt Date: 20130321
  Transmission Date: 20140127
  Serious: Yes (Other)
  Sender: FDA-Public Use
  Company Number: US-ELI_LILLY_AND_COMPANY-US200603001152

PATIENT
  Age: 34 Year
  Sex: Male
  Weight: 63.49 kg

DRUGS (3)
  1. ZYPREXA [Suspect]
     Indication: SCHIZOPHRENIA, PARANOID TYPE
     Dosage: 1 DF, UNKNOWN
     Route: 048
     Dates: start: 2001, end: 200512
  2. XANAX                                   /USA/ [Concomitant]
  3. ZANTAC [Concomitant]
     Dosage: 1 DF, UNKNOWN

REACTIONS (12)
  - Pancreatitis [Unknown]
  - Hypersensitivity [Unknown]
  - Folliculitis [Unknown]
  - Eczema [Unknown]
  - Keratosis pilaris [Unknown]
  - Acne [Unknown]
  - Chest pain [Unknown]
  - Helicobacter infection [Unknown]
  - Oesophageal candidiasis [Unknown]
  - Oesophagitis [Unknown]
  - Gingival bleeding [Recovering/Resolving]
  - Weight increased [Recovering/Resolving]
